FAERS Safety Report 7724625-0 (Version None)
Quarter: 2011Q3

REPORT INFORMATION
  Report Type: 
  Country: None (occurrence: None)
  Receive Date: 20110901
  Receipt Date: 20110825
  Transmission Date: 20111222
  Serious: Yes (Other)
  Sender: FDA-Public Use
  Company Number: JP-PFIZER INC-2010084368

PATIENT
  Age: 18 Year
  Sex: Male
  Weight: 53 kg

DRUGS (11)
  1. URSODEOXYCHOLIC ACID [Concomitant]
  2. TACROLIMUS [Interacting]
     Indication: GRAFT VERSUS HOST DISEASE
     Dosage: UNK
     Route: 041
  3. MEROPENEM [Concomitant]
  4. LANSOPRAZOLE [Interacting]
     Dosage: 15 MG, 1X/DAY
     Route: 048
  5. ACYCLOVIR [Concomitant]
  6. LENOGRASTIM [Concomitant]
  7. VFEND [Suspect]
     Indication: PROPHYLAXIS AGAINST TRANSPLANT REJECTION
     Dosage: 200 MG, 2X/DAY
     Route: 042
  8. LANSOPRAZOLE [Interacting]
     Indication: PROPHYLAXIS AGAINST TRANSPLANT REJECTION
     Dosage: 30 MG, 2X/DAY
     Route: 042
  9. CEFEPIME [Concomitant]
  10. VANCOMYCIN [Concomitant]
  11. DOPAMINE HYDROCHLORIDE [Concomitant]

REACTIONS (3)
  - DRUG INTERACTION [None]
  - DRUG LEVEL DECREASED [None]
  - GRAFT VERSUS HOST DISEASE [None]
